FAERS Safety Report 8875368 (Version 2)
Quarter: 2012Q4

REPORT INFORMATION
  Report Type: 
  Country: US (occurrence: US)
  Receive Date: 20121030
  Receipt Date: 20121205
  Transmission Date: 20130627
  Serious: Yes (Other)
  Sender: FDA-Public Use
  Company Number: US-VERTEX PHARMACEUTICAL INC.-2012-023706

PATIENT
  Sex: Male
  Weight: 92 kg

DRUGS (6)
  1. VX-950 (TELAPREVIR) [Suspect]
     Indication: HEPATITIS C
     Dosage: 750 mg, tid
     Route: 048
     Dates: start: 20120924
  2. RIBASPHERE [Suspect]
     Indication: HEPATITIS C
     Dosage: 600 mg, bid
     Route: 048
     Dates: start: 20120924
  3. PEGASYS [Suspect]
     Indication: HEPATITIS C
     Dosage: 180 UNK, weekly
     Route: 058
     Dates: start: 20120924
  4. PROMETHAZINE - CODEINE [Concomitant]
     Dosage: UNK, prn
     Route: 048
  5. SYNTHROID [Concomitant]
     Dosage: 100 ?g, qd
     Route: 048
  6. NADOLOL [Concomitant]
     Dosage: 20 mg, qd
     Route: 048

REACTIONS (8)
  - Blindness [Unknown]
  - Anaemia [Unknown]
  - Rash pruritic [Recovered/Resolved]
  - Insomnia [Unknown]
  - Cough [Unknown]
  - Fatigue [Unknown]
  - Diarrhoea [Unknown]
  - Nausea [Unknown]
